FAERS Safety Report 4422648-0 (Version None)
Quarter: 2004Q3

REPORT INFORMATION
  Report Type: 
  Country: None (occurrence: None)
  Receive Date: 20040713
  Receipt Date: 20030422
  Transmission Date: 20050211
  Serious: No
  Sender: FDA-Public Use
  Company Number: PHEH2003US03368

PATIENT
  Age: 11 Year
  Sex: Male
  Weight: 34 kg

DRUGS (2)
  1. ELIDEL [Suspect]
     Indication: ECZEMA
     Dosage: ONCE/SINGLE, TOPICAL
     Route: 061
     Dates: start: 20030421, end: 20030421
  2. STEROIDS NOS [Concomitant]

REACTIONS (2)
  - ERYTHEMA [None]
  - SKIN DISCOLOURATION [None]
